FAERS Safety Report 7690630-6 (Version None)
Quarter: 2011Q3

REPORT INFORMATION
  Report Type: 
  Country: None (occurrence: None)
  Receive Date: 20110812
  Receipt Date: 20110808
  Transmission Date: 20111222
  Serious: Yes (Death)
  Sender: FDA-Public Use
  Company Number: DSA_47357_2011

PATIENT
  Sex: Male

DRUGS (2)
  1. XENAZINE [Suspect]
     Indication: TORTICOLLIS
     Dosage: (25 MG BID ORAL)
     Route: 048
     Dates: start: 20101006, end: 20110806
  2. XENAZINE [Suspect]
     Indication: DYSKINESIA
     Dosage: (25 MG BID ORAL)
     Route: 048
     Dates: start: 20101006, end: 20110806

REACTIONS (1)
  - DEATH [None]
